FAERS Safety Report 14882742 (Version 5)
Quarter: 2018Q2

REPORT INFORMATION
  Report Type: Report from Study
  Country: MX (occurrence: MX)
  Receive Date: 20180511
  Receipt Date: 20180629
  Transmission Date: 20180711
  Serious: Yes (Hospitalization)
  Sender: FDA-Public Use
  Company Number: MX-PFIZER INC-2018188174

PATIENT
  Age: 52 Year
  Sex: Female
  Weight: 73 kg

DRUGS (6)
  1. FOLIVITAL [Concomitant]
     Indication: RHEUMATOID ARTHRITIS
     Dosage: 5 MG, DAILY
     Route: 048
     Dates: start: 200508, end: 20180503
  2. TENORETIC [Concomitant]
     Active Substance: ATENOLOL\CHLORTHALIDONE
     Indication: HYPERTENSION
     Dosage: 100/25MG, DAILY
     Route: 048
     Dates: start: 2012, end: 20180503
  3. BI PROFENID [Concomitant]
     Active Substance: KETOPROFEN
     Indication: RHEUMATOID ARTHRITIS
     Dosage: 150 MG, DAILY
     Route: 048
     Dates: start: 20160222, end: 20180503
  4. ULSEN [Concomitant]
     Active Substance: OMEPRAZOLE
     Indication: GASTROENTERITIS
     Dosage: 20 MG, DAILY
     Route: 048
     Dates: start: 201007, end: 20180503
  5. LEDERTREXATE [Suspect]
     Active Substance: METHOTREXATE
     Dosage: 20 MG, WEEKLY
     Route: 048
     Dates: start: 200508, end: 20180409
  6. XELJANZ [Suspect]
     Active Substance: TOFACITINIB CITRATE
     Indication: RHEUMATOID ARTHRITIS
     Dosage: 5 MG, 2X/DAY
     Route: 048
     Dates: start: 20161005, end: 20180409

REACTIONS (1)
  - Wound dehiscence [Recovered/Resolved]

NARRATIVE: CASE EVENT DATE: 20180504
